FAERS Safety Report 11789032 (Version 1)
Quarter: 2015Q4

REPORT INFORMATION
  Report Type: Spontaneous
  Country: US (occurrence: US)
  Receive Date: 20151201
  Receipt Date: 20151201
  Transmission Date: 20160305
  Serious: No
  Sender: FDA-Public Use
  Company Number: US-SUN PHARMACEUTICAL INDUSTRIES LTD-2015US-102836

PATIENT
  Age: 21 Year
  Sex: Female
  Weight: 49.89 kg

DRUGS (1)
  1. OXCARBAZEPINE. [Suspect]
     Active Substance: OXCARBAZEPINE
     Indication: SEIZURE
     Dosage: 3 DF, DAILY
     Route: 065
     Dates: start: 201507

REACTIONS (1)
  - Rash [Unknown]

NARRATIVE: CASE EVENT DATE: 20150810
